FAERS Safety Report 12631809 (Version 3)
Quarter: 2016Q3

REPORT INFORMATION
  Report Type: Spontaneous
  Country: US (occurrence: US)
  Receive Date: 20160808
  Receipt Date: 20160808
  Transmission Date: 20161109
  Serious: No
  Sender: FDA-Public Use
  Company Number: US-BEH-2016061116

PATIENT
  Sex: Female
  Weight: 153 kg

DRUGS (37)
  1. HIZENTRA [Suspect]
     Active Substance: HUMAN IMMUNOGLOBULIN G
     Route: 058
     Dates: start: 20120907
  2. ASPIRIN. [Concomitant]
     Active Substance: ASPIRIN
  3. RESTASIS [Concomitant]
     Active Substance: CYCLOSPORINE
  4. FUROSEMIDE. [Concomitant]
     Active Substance: FUROSEMIDE
  5. CLONAZEPAM. [Concomitant]
     Active Substance: CLONAZEPAM
  6. FENTANYL. [Concomitant]
     Active Substance: FENTANYL
  7. LISINOPRIL. [Concomitant]
     Active Substance: LISINOPRIL
  8. GABAPENTIN. [Concomitant]
     Active Substance: GABAPENTIN
  9. PREDNISONE. [Concomitant]
     Active Substance: PREDNISONE
  10. PRIMIDONE. [Concomitant]
     Active Substance: PRIMIDONE
  11. CYMBALTA [Concomitant]
     Active Substance: DULOXETINE HYDROCHLORIDE
  12. FOSAMAX [Concomitant]
     Active Substance: ALENDRONATE SODIUM
  13. SINGULAIR [Concomitant]
     Active Substance: MONTELUKAST SODIUM
  14. ADVAIR HFA [Concomitant]
     Active Substance: FLUTICASONE PROPIONATE\SALMETEROL XINAFOATE
  15. LUNESTA [Concomitant]
     Active Substance: ESZOPICLONE
  16. LIPITOR [Concomitant]
     Active Substance: ATORVASTATIN CALCIUM
  17. OXYGEN. [Concomitant]
     Active Substance: OXYGEN
  18. LACTULOSE. [Concomitant]
     Active Substance: LACTULOSE
  19. OSCAL [Concomitant]
     Active Substance: CALCIUM CARBONATE
  20. LOVAZA [Concomitant]
     Active Substance: OMEGA-3-ACID ETHYL ESTERS
  21. CARDIZEM [Concomitant]
     Active Substance: DILTIAZEM HYDROCHLORIDE
  22. VITAMIN D [Concomitant]
     Active Substance: CHOLECALCIFEROL
  23. DIPHENHYDRAMINE. [Concomitant]
     Active Substance: DIPHENHYDRAMINE
  24. TAMIFLU [Concomitant]
     Active Substance: OSELTAMIVIR PHOSPHATE
  25. NASONEX [Concomitant]
     Active Substance: MOMETASONE FUROATE
  26. MOBIC [Concomitant]
     Active Substance: MELOXICAM
  27. ISOSORBIDE. [Concomitant]
     Active Substance: ISOSORBIDE
  28. HIZENTRA [Suspect]
     Active Substance: HUMAN IMMUNOGLOBULIN G
     Indication: IMMUNODEFICIENCY COMMON VARIABLE
     Route: 058
  29. SELENIUM [Concomitant]
     Active Substance: SELENIUM
  30. HIZENTRA [Suspect]
     Active Substance: HUMAN IMMUNOGLOBULIN G
     Indication: HYPOGAMMAGLOBULINAEMIA
     Route: 058
  31. CLOBETASOL [Concomitant]
     Active Substance: CLOBETASOL
  32. ZYRTEC [Concomitant]
     Active Substance: CETIRIZINE HYDROCHLORIDE
  33. EVOXAC [Concomitant]
     Active Substance: CEVIMELINE HYDROCHLORIDE
  34. PLAVIX [Concomitant]
     Active Substance: CLOPIDOGREL BISULFATE
  35. POTASSIUM [Concomitant]
     Active Substance: POTASSIUM
  36. HYDROCODON [Concomitant]
     Active Substance: HYDROCODONE
  37. MUCINEX [Concomitant]
     Active Substance: GUAIFENESIN

REACTIONS (1)
  - Upper respiratory tract infection [Unknown]
